FAERS Safety Report 7427882-3 (Version None)
Quarter: 2011Q2

REPORT INFORMATION
  Report Type: 
  Country: None (occurrence: None)
  Receive Date: 20110421
  Receipt Date: 20110408
  Transmission Date: 20111010
  Serious: Yes (Hospitalization)
  Sender: FDA-Public Use
  Company Number: IE-ELI_LILLY_AND_COMPANY-IE201103008799

PATIENT
  Sex: Female

DRUGS (6)
  1. FORTEO [Suspect]
     Indication: OSTEOPOROSIS
     Dosage: 20 UG, UNK
     Dates: start: 20110311
  2. CALCICHEW [Concomitant]
  3. SOLPADOL [Concomitant]
  4. BUTRANS [Concomitant]
  5. LIPITOR [Concomitant]
  6. PARALIEF [Concomitant]

REACTIONS (5)
  - MUSCULOSKELETAL PAIN [None]
  - NAUSEA [None]
  - DECREASED APPETITE [None]
  - HERPES ZOSTER [None]
  - DEHYDRATION [None]
